FAERS Safety Report 12671835 (Version 5)
Quarter: 2017Q1

REPORT INFORMATION
  Report Type: Spontaneous
  Country: JP (occurrence: JP)
  Receive Date: 20160822
  Receipt Date: 20170124
  Transmission Date: 20170428
  Serious: Yes (Hospitalization, Other)
  Sender: FDA-Public Use
  Company Number: JP-GLAXOSMITHKLINE-JP2016JPN118808

PATIENT
  Age: 39 Year
  Sex: Female
  Weight: 74 kg

DRUGS (19)
  1. PREDONINE [Concomitant]
     Active Substance: PREDNISOLONE
     Dosage: 20 MG, 1D
     Dates: start: 20160720, end: 20160812
  2. MEPOLIZUMAB [Suspect]
     Active Substance: MEPOLIZUMAB
     Indication: ASPIRIN-EXACERBATED RESPIRATORY DISEASE
     Dosage: 100 MG, QD
     Route: 058
     Dates: start: 20160810
  3. MEPOLIZUMAB [Suspect]
     Active Substance: MEPOLIZUMAB
     Indication: ASTHMA
  4. DEXART [Concomitant]
     Active Substance: DEXAMETHASONE SODIUM PHOSPHATE
     Dosage: 3.3 MG, BID
     Dates: start: 20160810, end: 20160810
  5. FULMETA LOTION [Concomitant]
     Indication: RASH
     Dosage: UNK
     Dates: start: 20160720
  6. IMIGRAN [Concomitant]
     Active Substance: SUMATRIPTAN SUCCINATE
     Indication: MIGRAINE
     Dosage: UNK
     Dates: start: 20160805
  7. DEXART [Concomitant]
     Active Substance: DEXAMETHASONE SODIUM PHOSPHATE
     Indication: ASTHMA
     Dosage: 3.3 MG, BID
     Dates: start: 20160809, end: 20160809
  8. BOSMIN [Concomitant]
     Active Substance: EPINEPHRINE
     Indication: ASTHMA
     Dosage: 0.3 MG, BID
     Dates: start: 20160810, end: 20160810
  9. LANSOPRAZOLE-OD TABLETS [Concomitant]
     Dosage: UNK
     Dates: start: 20160817, end: 20160824
  10. REBAMIPIDE [Concomitant]
     Active Substance: REBAMIPIDE
     Indication: ABDOMINAL PAIN UPPER
     Dosage: 300 MG, 1D
  11. VASOLAN [Concomitant]
     Active Substance: VERAPAMIL HYDROCHLORIDE
     Indication: MIGRAINE
     Dosage: 120 MG, 1D
     Dates: start: 20160805
  12. SUCRALFATE HYDRATE [Concomitant]
     Dosage: 3 G, 1D
     Dates: start: 20160810, end: 20160823
  13. AMERGE [Suspect]
     Active Substance: NARATRIPTAN HYDROCHLORIDE
     Indication: MIGRAINE
     Dosage: 2.5 MG, U
     Route: 048
     Dates: start: 20160806
  14. PREDONINE [Concomitant]
     Active Substance: PREDNISOLONE
     Dosage: 25 MG, 1D
  15. DEXART [Concomitant]
     Active Substance: DEXAMETHASONE SODIUM PHOSPHATE
     Dosage: 3.3 MG, UNK
     Dates: start: 20160812
  16. BETAMETHASONE. [Concomitant]
     Active Substance: BETAMETHASONE
     Dosage: 1 MG, 1D
     Dates: start: 20160823
  17. ALLELOCK OD TABLETS [Concomitant]
     Indication: SINUSITIS
     Dosage: 10 MG, 1D
     Dates: start: 20160302
  18. MAGMITT [Concomitant]
     Active Substance: MAGNESIUM OXIDE
     Indication: CONSTIPATION
     Dosage: 1500 MG, 1D
  19. BETAMETHASONE. [Concomitant]
     Active Substance: BETAMETHASONE
     Dosage: 2 MG, UNK
     Dates: start: 20160816

REACTIONS (4)
  - Status asthmaticus [Recovering/Resolving]
  - Asthma [Recovering/Resolving]
  - Nasal congestion [Unknown]
  - Wheezing [Recovering/Resolving]

NARRATIVE: CASE EVENT DATE: 20160810
